FAERS Safety Report 9202411 (Version 1)
Quarter: 2013Q2

REPORT INFORMATION
  Report Type: Spontaneous
  Country: US (occurrence: US)
  Receive Date: 20130401
  Receipt Date: 20130401
  Transmission Date: 20140414
  Serious: No
  Sender: FDA-Public Use
  Company Number: US-PFIZER INC-2013103241

PATIENT
  Age: 34 Year
  Sex: Female
  Weight: 63.04 kg

DRUGS (2)
  1. CELEBREX [Suspect]
     Indication: HEADACHE
     Dosage: 200 MG, DAILY
     Dates: start: 20130325, end: 20130329
  2. CELEBREX [Suspect]
     Indication: INFLAMMATION

REACTIONS (9)
  - Nervousness [Recovering/Resolving]
  - Blood pressure increased [Recovering/Resolving]
  - Heart rate increased [Recovering/Resolving]
  - Feeling hot [Recovering/Resolving]
  - Paraesthesia [Recovering/Resolving]
  - Feeling abnormal [Recovering/Resolving]
  - Chest discomfort [Recovering/Resolving]
  - Anxiety [Unknown]
  - Palpitations [Unknown]
